FAERS Safety Report 9632010 (Version 1)
Quarter: 2013Q4

REPORT INFORMATION
  Report Type: Spontaneous
  Country: US (occurrence: None)
  Receive Date: 20131017
  Receipt Date: 20131017
  Transmission Date: 20140711
  Serious: Yes (Other)
  Sender: FDA-Public Use
  Company Number: None

PATIENT
  Age: 10 Year
  Sex: Male
  Weight: 44 kg

DRUGS (7)
  1. PERPHENAZINE [Suspect]
     Indication: PSYCHOTIC DISORDER
     Dosage: 16 MG AM, 16 MG 3 PM, 8 MG BEDT
     Route: 048
     Dates: start: 20130928, end: 20131003
  2. PERPHENAZINE [Suspect]
     Indication: AGGRESSION
     Dosage: 16 MG AM, 16 MG 3 PM, 8 MG BEDT
     Route: 048
     Dates: start: 20130928, end: 20131003
  3. ABILIFY [Concomitant]
  4. TENEX [Concomitant]
  5. ZYRTEC [Concomitant]
  6. MULTI-VITAMIN [Concomitant]
  7. FISH OIL [Concomitant]

REACTIONS (4)
  - Aggression [None]
  - Product substitution issue [None]
  - Abnormal behaviour [None]
  - Condition aggravated [None]
